FAERS Safety Report 7902732-7 (Version None)
Quarter: 2011Q4

REPORT INFORMATION
  Report Type: 
  Country: None (occurrence: None)
  Receive Date: 20111109
  Receipt Date: 20111028
  Transmission Date: 20120403
  Serious: Yes (Hospitalization)
  Sender: FDA-Public Use
  Company Number: DE-BIOGENIDEC-2010BI018107

PATIENT
  Age: 58 Year
  Sex: Female
  Weight: 81 kg

DRUGS (10)
  1. MULTI-VITAMINS [Concomitant]
  2. AMITRIPTYLINE HCL [Concomitant]
     Indication: NEURALGIA
  3. MUSCLE RELAXANTS (NOS) [Concomitant]
  4. BACLOFEN [Concomitant]
     Indication: MUSCLE SPASTICITY
  5. ORTOTON [Concomitant]
     Indication: MUSCLE SPASTICITY
  6. PANTOPRAZOLE SODIUM [Concomitant]
     Indication: GASTRITIS
  7. TYSABRI [Suspect]
     Indication: MULTIPLE SCLEROSIS
     Route: 042
     Dates: start: 20070511
  8. ANTACIDS (NOS) [Concomitant]
  9. PANTOPRAZOLE SODIUM [Concomitant]
     Indication: GASTRIC ULCER
  10. METOPROLOL TARTRATE [Concomitant]
     Indication: HYPERTONIA

REACTIONS (2)
  - THROMBOSIS [None]
  - VENOUS THROMBOSIS [None]
